FAERS Safety Report 5820262-3 (Version None)
Quarter: 2008Q3

REPORT INFORMATION
  Report Type: 
  Country: None (occurrence: None)
  Receive Date: 20080718
  Receipt Date: 20080718
  Transmission Date: 20090109
  Serious: Yes (Death)
  Sender: FDA-Public Use
  Company Number: None

PATIENT
  Age: 83 Year
  Sex: Male
  Weight: 74.8435 kg

DRUGS (2)
  1. PLAVIX [Suspect]
     Indication: MYOCARDIAL INFARCTION
     Dates: start: 20071224, end: 20080706
  2. ASPIRIN [Suspect]

REACTIONS (6)
  - CEREBRAL HAEMORRHAGE [None]
  - EYE SWELLING [None]
  - FALL [None]
  - LACERATION [None]
  - PERIORBITAL HAEMATOMA [None]
  - SUBDURAL HAEMATOMA [None]
